FAERS Safety Report 10186590 (Version 2)
Quarter: 2014Q2

REPORT INFORMATION
  Report Type: Spontaneous
  Country: JP (occurrence: JP)
  Receive Date: 20140521
  Receipt Date: 20140528
  Transmission Date: 20141212
  Serious: Yes (Other)
  Sender: FDA-Public Use
  Company Number: JP-PFIZER INC-2014132664

PATIENT
  Age: 25 Year
  Sex: Male

DRUGS (1)
  1. ZITHROMAC [Suspect]
     Dosage: UNK
     Route: 048
     Dates: start: 201305

REACTIONS (1)
  - Oculomucocutaneous syndrome [Unknown]
